FAERS Safety Report 20802400 (Version 1)
Quarter: 2022Q2

REPORT INFORMATION
  Report Type: Spontaneous
  Country: US (occurrence: None)
  Receive Date: 20220509
  Receipt Date: 20220509
  Transmission Date: 20220721
  Serious: Yes (Hospitalization)
  Sender: FDA-Public Use
  Company Number: None

PATIENT
  Age: 65 Year
  Sex: Male

DRUGS (2)
  1. OXYBUTYNIN CHLORIDE [Suspect]
     Active Substance: OXYBUTYNIN CHLORIDE
     Indication: Anticholinergic syndrome
     Dosage: FREQUENCY : DAILY;?
     Route: 048
     Dates: start: 20210915, end: 20220424
  2. MIRTAZAPINE [Suspect]
     Active Substance: MIRTAZAPINE
     Dosage: FREQUENCY : AT BEDTIME;?
     Route: 048
     Dates: start: 20130411

REACTIONS (11)
  - Hypertension [None]
  - Tachycardia [None]
  - Hyperthermia [None]
  - Mydriasis [None]
  - Dry mouth [None]
  - Erythema [None]
  - Urinary retention [None]
  - Mental status changes [None]
  - Anhidrosis [None]
  - Overdose [None]
  - Anticholinergic syndrome [None]

NARRATIVE: CASE EVENT DATE: 20220424
